FAERS Safety Report 18365897 (Version 1)
Quarter: 2020Q4

REPORT INFORMATION
  Report Type: Spontaneous
  Country: US (occurrence: US)
  Receive Date: 20201009
  Receipt Date: 20201009
  Transmission Date: 20210114
  Serious: No
  Sender: FDA-Public Use
  Company Number: US-009507513-2009USA010380

PATIENT
  Age: 54 Year
  Sex: Female

DRUGS (1)
  1. INTRON A [Suspect]
     Active Substance: INTERFERON ALFA-2B
     Indication: ANOGENITAL WARTS
     Dosage: 18MILLION UNIT/ML (1ML) THREE TIMES PER WEEK
     Route: 058

REACTIONS (1)
  - Off label use [Unknown]
